FAERS Safety Report 18509109 (Version 4)
Quarter: 2021Q2

REPORT INFORMATION
  Report Type: Spontaneous
  Country: IT (occurrence: IT)
  Receive Date: 20201117
  Receipt Date: 20210614
  Transmission Date: 20210717
  Serious: Yes (Hospitalization, Other)
  Sender: FDA-Public Use
  Company Number: IT-AUROBINDO-AUR-APL-2020-056043

PATIENT
  Age: 67 Year
  Sex: Male

DRUGS (19)
  1. PASIREOTIDE. [Suspect]
     Active Substance: PASIREOTIDE
     Indication: PITUITARY-DEPENDENT CUSHING^S SYNDROME
     Dosage: 40 MILLIGRAM (QM)
     Route: 058
  2. VITAMIN D [Concomitant]
     Active Substance: VITAMIN D NOS
     Indication: PRODUCT USED FOR UNKNOWN INDICATION
     Dosage: UNK
     Route: 065
  3. CEFTRIAXONE. [Suspect]
     Active Substance: CEFTRIAXONE
     Indication: COVID-19 PNEUMONIA
     Dosage: UNK
     Route: 065
  4. CABERGOLINE. [Suspect]
     Active Substance: CABERGOLINE
     Indication: PITUITARY-DEPENDENT CUSHING^S SYNDROME
     Dosage: 0.5 MILLIGRAM, ONCE A DAY
     Route: 065
  5. PASIREOTIDE. [Suspect]
     Active Substance: PASIREOTIDE
     Dosage: 40 MILLIGRAM 1 MONTH (QM)
     Route: 030
  6. PASIREOTIDE. [Suspect]
     Active Substance: PASIREOTIDE
     Dosage: 40 MG, QM
     Route: 058
  7. METFORMIN [Concomitant]
     Active Substance: METFORMIN HYDROCHLORIDE
     Indication: DIABETES MELLITUS
     Dosage: UNK
     Route: 065
     Dates: start: 201806
  8. AZITHROMYCIN ANHYDROUS. [Suspect]
     Active Substance: AZITHROMYCIN ANHYDROUS
     Indication: COVID-19 PNEUMONIA
     Dosage: UNK
     Route: 065
  9. HYDROXYCHLOROQUINE [Suspect]
     Active Substance: HYDROXYCHLOROQUINE
     Indication: COVID-19 PNEUMONIA
     Dosage: UNK
     Route: 065
  10. HYDROXYCHLOROQUINE [Suspect]
     Active Substance: HYDROXYCHLOROQUINE
     Indication: COVID-19
  11. ASPIRIN. [Suspect]
     Active Substance: ASPIRIN
     Indication: PRODUCT USED FOR UNKNOWN INDICATION
     Dosage: UNK
     Route: 065
  12. LEVETIRACETAM. [Suspect]
     Active Substance: LEVETIRACETAM
     Indication: COVID-19
     Dosage: UNK
     Route: 065
  13. SITAGLIPTIN [Suspect]
     Active Substance: SITAGLIPTIN
     Indication: DIABETES MELLITUS
     Dosage: 50 MILLIGRAM, ONCE A DAY (QD)
     Route: 065
     Dates: start: 201806
  14. AZITHROMYCIN ANHYDROUS. [Suspect]
     Active Substance: AZITHROMYCIN ANHYDROUS
     Dosage: UNK
     Route: 065
  15. L?THYROXINE [Suspect]
     Active Substance: LEVOTHYROXINE
     Indication: HYPOPITUITARISM
     Dosage: 100 MICROGRAM, ONCE A DAY
     Route: 065
  16. CEFTRIAXONE. [Suspect]
     Active Substance: CEFTRIAXONE
     Indication: COVID-19
  17. METYRAPONE [Suspect]
     Active Substance: METYRAPONE
     Dosage: UNK
     Route: 065
     Dates: start: 202001
  18. METYRAPONE [Suspect]
     Active Substance: METYRAPONE
     Indication: PITUITARY-DEPENDENT CUSHING^S SYNDROME
     Dosage: 500 MILLIGRAM, ONCE A DAY (QD, BEDTIME)
     Route: 065
     Dates: start: 2019, end: 2019
  19. CABERGOLINE. [Suspect]
     Active Substance: CABERGOLINE
     Indication: CUSHING^S SYNDROME

REACTIONS (10)
  - Drug interaction [Unknown]
  - Adrenal insufficiency [Unknown]
  - Product use in unapproved indication [Unknown]
  - COVID-19 [Recovered/Resolved]
  - Deep vein thrombosis [Unknown]
  - Product use issue [Unknown]
  - Hypotension [Recovered/Resolved]
  - Off label use [Unknown]
  - Hypoglycaemia [Recovered/Resolved]
  - Hyperkalaemia [Unknown]

NARRATIVE: CASE EVENT DATE: 202002
